FAERS Safety Report 4860744-4 (Version None)
Quarter: 2005Q4

REPORT INFORMATION
  Report Type: 
  Country: None (occurrence: None)
  Receive Date: 20051220
  Receipt Date: 20051207
  Transmission Date: 20060501
  Serious: Yes (Other)
  Sender: FDA-Public Use
  Company Number: JP-AVENTIS-200513714JP

PATIENT
  Age: 79 Year
  Sex: Female

DRUGS (1)
  1. TAXOTERE [Suspect]
     Indication: UTERINE CANCER
     Route: 041

REACTIONS (2)
  - SUPRAVENTRICULAR TACHYCARDIA [None]
  - VENTRICULAR DYSFUNCTION [None]
